FAERS Safety Report 24254791 (Version 2)
Quarter: 2024Q4

REPORT INFORMATION
  Report Type: Spontaneous
  Country: DE (occurrence: DE)
  Receive Date: 20240827
  Receipt Date: 20241010
  Transmission Date: 20250115
  Serious: Yes (Other)
  Sender: NOVARTIS
  Company Number: DE-002147023-NVSC2024DE172352

PATIENT
  Sex: Male

DRUGS (10)
  1. NEVANAC [Suspect]
     Active Substance: NEPAFENAC
     Indication: Product used for unknown indication
     Dosage: 1 MILLIGRAM PER MILLILITRE, QD (ONCE A DAY IN THE EVENING)
     Route: 065
     Dates: start: 20240815, end: 202408
  2. NEVANAC [Suspect]
     Active Substance: NEPAFENAC
     Dosage: 1 MILLIGRAM PER MILLILITRE (3 DROPS EVERY HOUR/UP TO 30-45 TIMES A DAY)
     Route: 065
     Dates: start: 20240821, end: 20240905
  3. NEVANAC [Suspect]
     Active Substance: NEPAFENAC
     Dosage: 3 MG (1 DROP EVERY ONE HOUR)
     Route: 065
     Dates: start: 20240821, end: 20240905
  4. NEVANAC [Suspect]
     Active Substance: NEPAFENAC
     Dosage: 3 MG (1 DROP EVERY OTHER HOUR)
     Route: 065
     Dates: start: 20240821, end: 20240905
  5. NEVANAC [Suspect]
     Active Substance: NEPAFENAC
     Dosage: 1 MG (3 DROP EVERY OTHER HOUR)
     Route: 065
     Dates: start: 20240905, end: 20240923
  6. NEVANAC [Suspect]
     Active Substance: NEPAFENAC
     Dosage: 3 MG (3 DROPS EVERY OTHER HOUR)
     Route: 065
     Dates: start: 20240905, end: 20240923
  7. TRAVATAN [Suspect]
     Active Substance: TRAVOPROST
     Indication: Product used for unknown indication
     Dosage: UNK (LEFT EYE/RIGHT EYE)
     Route: 047
     Dates: start: 20240821
  8. ELIQUIS [Concomitant]
     Active Substance: APIXABAN
     Indication: Product used for unknown indication
     Dosage: UNK
     Route: 065
  9. BRIMONIDINE [Concomitant]
     Active Substance: BRIMONIDINE TARTRATE
     Indication: Product used for unknown indication
     Dosage: 2 MG (RIGHT EYE, 8 AM, 7 PM)
     Route: 047
     Dates: start: 20240821
  10. COSOPT [Concomitant]
     Active Substance: DORZOLAMIDE HYDROCHLORIDE\TIMOLOL MALEATE
     Indication: Product used for unknown indication
     Dosage: UNK (8AM, 7PM)
     Route: 047
     Dates: start: 20240821

REACTIONS (2)
  - Macular oedema [Recovered/Resolved]
  - Off label use [Unknown]

NARRATIVE: CASE EVENT DATE: 20240821
